FAERS Safety Report 5137828-9 (Version None)
Quarter: 2006Q4

REPORT INFORMATION
  Report Type: 
  Country: None (occurrence: None)
  Receive Date: 20061030
  Receipt Date: 20060120
  Transmission Date: 20070319
  Serious: No
  Sender: FDA-Public Use
  Company Number: US-GLAXOSMITHKLINE-A0590269A

PATIENT
  Sex: Female

DRUGS (5)
  1. ADVAIR HFA [Suspect]
     Indication: ILL-DEFINED DISORDER
     Dosage: 1PUFF SINGLE DOSE
     Route: 055
     Dates: start: 20060120
  2. SYNTHROID [Concomitant]
  3. BENICAR [Concomitant]
  4. ZETIA [Concomitant]
  5. NORVASC [Concomitant]

REACTIONS (2)
  - PHARYNGOLARYNGEAL PAIN [None]
  - THROAT IRRITATION [None]
